FAERS Safety Report 4645979-8 (Version None)
Quarter: 2005Q2

REPORT INFORMATION
  Report Type: 
  Country: None (occurrence: None)
  Receive Date: 20050427
  Receipt Date: 20050307
  Transmission Date: 20051028
  Serious: Yes (Hospitalization, Disabling)
  Sender: FDA-Public Use
  Company Number: GB-BOEHRINGER INGELHEIM PHARMACEUTICALS, INC.-2005-UK-00380UK

PATIENT
  Sex: Female

DRUGS (1)
  1. CLONIDINE [Suspect]
     Indication: NEURALGIA
     Dosage: 3 DOSES TAKEN
     Route: 048
     Dates: start: 20040301, end: 20050301

REACTIONS (2)
  - ABASIA [None]
  - LOSS OF CONTROL OF LEGS [None]
